FAERS Safety Report 16543460 (Version 1)
Quarter: 2019Q3

REPORT INFORMATION
  Report Type: Other
  Country: DE (occurrence: DE)
  Receive Date: 20190709
  Receipt Date: 20190709
  Transmission Date: 20191004
  Serious: Yes (Congenital Anomaly, Other)
  Sender: FDA-Public Use
  Company Number: DE-LUPIN PHARMACEUTICALS INC.-2019-04270

PATIENT
  Age: 1 Day
  Sex: Female
  Weight: 4.12 kg

DRUGS (5)
  1. SERTRALINE [Suspect]
     Active Substance: SERTRALINE HYDROCHLORIDE
     Indication: DEPRESSION
     Dosage: 100 MILLIGRAM, QD, (BIS 50) ]/ DOSE REDUCTION 5 WEEKS BEFORE THE ESTIMATED DATE OF DELIVERY
     Route: 064
     Dates: end: 20180425
  2. AMOXICILLIN. [Concomitant]
     Active Substance: AMOXICILLIN
     Indication: ABSCESS LIMB
     Dosage: 1500 MILLIGRAM, QD, (BIS 1000)
     Route: 064
  3. L-THYROXIN [LEVOTHYROXINE] [Concomitant]
     Active Substance: LEVOTHYROXINE SODIUM
     Indication: HYPOTHYROIDISM
     Dosage: 175 MICROGRAM, QD, (BIS 100)
     Route: 064
     Dates: start: 20170715, end: 20180425
  4. PARACETAMOL [Concomitant]
     Active Substance: ACETAMINOPHEN
     Indication: HEADACHE
     Dosage: 500 MILLIGRAM, QD, IN TOTAL FOR 7 DAYS
     Route: 064
  5. FEMIBION [CALCIUM PHOSPHATE DIBASIC;FERROUS SUCCINATE;MAGNESIUM HYDROX [Concomitant]
     Indication: NUTRITIONAL SUPPLEMENTATION
     Dosage: UNK
     Route: 065

REACTIONS (7)
  - Pyelonephritis [Recovered/Resolved]
  - Congenital renal cyst [Unknown]
  - Foetal exposure during pregnancy [Unknown]
  - Congenital ureterovesical junction anomaly [Recovered/Resolved with Sequelae]
  - Congenital hydronephrosis [Unknown]
  - Hepatitis neonatal [Recovering/Resolving]
  - Congenital megaureter [Recovered/Resolved with Sequelae]

NARRATIVE: CASE EVENT DATE: 20180425
